FAERS Safety Report 14242218 (Version 2)
Quarter: 2017Q4

REPORT INFORMATION
  Report Type: Spontaneous
  Country: FR (occurrence: FR)
  Receive Date: 20171201
  Receipt Date: 20171219
  Transmission Date: 20180321
  Serious: No
  Sender: FDA-Public Use
  Company Number: FR-ASTRAZENECA-2017SF21590

PATIENT
  Age: 3949 Day
  Sex: Female

DRUGS (2)
  1. SYMBICORT [Suspect]
     Active Substance: BUDESONIDE\FORMOTEROL FUMARATE DIHYDRATE
     Indication: ASTHMA
     Dosage: 200/6 MICROGRAMS, ONE INHALATION TWO TIMES A DAY
     Route: 055
     Dates: start: 20170628
  2. VENTOLINE [Concomitant]
     Active Substance: ALBUTEROL
     Indication: ASTHMATIC CRISIS

REACTIONS (2)
  - Off label use [Unknown]
  - Asthma [Unknown]

NARRATIVE: CASE EVENT DATE: 20170628
